FAERS Safety Report 6517819-3 (Version None)
Quarter: 2009Q4

REPORT INFORMATION
  Report Type: 
  Country: None (occurrence: None)
  Receive Date: 20091224
  Receipt Date: 20091221
  Transmission Date: 20100525
  Serious: Yes (Hospitalization)
  Sender: FDA-Public Use
  Company Number: DE-SANOFI-AVENTIS-2009SA010324

PATIENT
  Sex: Male

DRUGS (4)
  1. OXALIPLATIN [Suspect]
     Route: 041
     Dates: start: 20091119, end: 20091119
  2. DOCETAXEL [Suspect]
     Route: 041
     Dates: start: 20091119, end: 20091119
  3. FLUOROURACIL [Suspect]
     Route: 041
     Dates: start: 20091119, end: 20091119
  4. FOLINIC ACID [Suspect]
     Route: 041
     Dates: start: 20091119, end: 20091119

REACTIONS (3)
  - DIARRHOEA [None]
  - HICCUPS [None]
  - WEIGHT DECREASED [None]
